FAERS Safety Report 4761010-8 (Version None)
Quarter: 2005Q3

REPORT INFORMATION
  Report Type: 
  Country: None (occurrence: None)
  Receive Date: 20050901
  Receipt Date: 20050825
  Transmission Date: 20060218
  Serious: Yes (Hospitalization)
  Sender: FDA-Public Use
  Company Number: 217224

PATIENT
  Age: 51 Year
  Sex: Female

DRUGS (10)
  1. XOLAIR [Suspect]
     Indication: ASTHMA
     Dosage: 300 MG, Q2W
     Dates: start: 20050310
  2. PULMICORT [Concomitant]
  3. ALBUTEROL (ALBUTEROL, ALBUTEROL SULFATE) [Concomitant]
  4. ATROVENT [Concomitant]
  5. CROMOLYN (CROMOLYN SODIUM) [Concomitant]
  6. RHINOCORT [Concomitant]
  7. CLARITIN [Concomitant]
  8. SINGULAIR [Concomitant]
  9. PREDNISONE [Concomitant]
  10. SPORANOX [Concomitant]

REACTIONS (5)
  - ASTHMA [None]
  - CONDITION AGGRAVATED [None]
  - DIAPHRAGM MUSCLE WEAKNESS [None]
  - MYOPATHY [None]
  - MYOPATHY STEROID [None]
